FAERS Safety Report 5488606-2 (Version None)
Quarter: 2007Q4

REPORT INFORMATION
  Report Type: 
  Country: None (occurrence: None)
  Receive Date: 20071001
  Receipt Date: 20070125
  Transmission Date: 20080405
  Serious: Yes (Other)
  Sender: FDA-Public Use
  Company Number: 200710218BWH

PATIENT
  Age: 58 Year
  Sex: Female

DRUGS (2)
  1. CIPRO [Suspect]
     Indication: DRUG USE FOR UNKNOWN INDICATION
  2. AVONEX [Concomitant]

REACTIONS (2)
  - ANAPHYLACTIC SHOCK [None]
  - THROAT TIGHTNESS [None]
